FAERS Safety Report 16428235 (Version 1)
Quarter: 2019Q2

REPORT INFORMATION
  Report Type: Spontaneous
  Country: JP (occurrence: JP)
  Receive Date: 20190613
  Receipt Date: 20190613
  Transmission Date: 20190711
  Serious: Yes (Hospitalization, Other)
  Sender: FDA-Public Use
  Company Number: JP-PFIZER INC-2019244617

PATIENT
  Sex: Female

DRUGS (2)
  1. RHEUMATREX [Suspect]
     Active Substance: METHOTREXATE SODIUM
     Indication: RHEUMATOID ARTHRITIS
     Dosage: 3 DF, UNK
     Route: 048
     Dates: start: 2015
  2. RHEUMATREX [Suspect]
     Active Substance: METHOTREXATE SODIUM
     Dosage: 4 DF, UNK
     Route: 048
     Dates: end: 201801

REACTIONS (4)
  - Pancreatitis [Unknown]
  - Bone marrow failure [Unknown]
  - Hepatic cirrhosis [Unknown]
  - Haematochezia [Unknown]

NARRATIVE: CASE EVENT DATE: 201805
